FAERS Safety Report 5658305-2 (Version None)
Quarter: 2008Q1

REPORT INFORMATION
  Report Type: 
  Country: None (occurrence: None)
  Receive Date: 20080310
  Receipt Date: 20070226
  Transmission Date: 20080703
  Serious: No
  Sender: FDA-Public Use
  Company Number: US-BAYER-200710243BCC

PATIENT
  Sex: Female
  Weight: 59 kg

DRUGS (3)
  1. ALEVE [Suspect]
     Indication: HEADACHE
     Dosage: TOTAL DAILY DOSE: 220 MG  UNIT DOSE: 220 MG
     Route: 048
  2. PROMETHAZINE [Concomitant]
  3. CYCLOBENZAPRINE HCL [Concomitant]

REACTIONS (8)
  - BLISTER [None]
  - CYSTITIS [None]
  - DYSURIA [None]
  - HYPERSENSITIVITY [None]
  - MICTURITION DISORDER [None]
  - RASH [None]
  - RASH ERYTHEMATOUS [None]
  - RASH PRURITIC [None]
